FAERS Safety Report 5487559-0 (Version None)
Quarter: 2007Q4

REPORT INFORMATION
  Report Type: 
  Country: None (occurrence: None)
  Receive Date: 20071015
  Receipt Date: 20071004
  Transmission Date: 20080405
  Serious: Yes (Hospitalization)
  Sender: FDA-Public Use
  Company Number: 2007AL004243

PATIENT
  Age: 41 Year
  Sex: Male

DRUGS (5)
  1. TRAMADOL HCL [Suspect]
     Indication: PAIN
     Dosage: 100 MG;QD;PO
     Route: 048
     Dates: start: 20060508
  2. NARATRIPTAN [Concomitant]
  3. LANSOPRAZOLE [Concomitant]
  4. ETORICOXIB [Concomitant]
  5. CYCLIZINE [Concomitant]

REACTIONS (4)
  - DRUG INTERACTION [None]
  - DYSPHASIA [None]
  - HYPERVENTILATION [None]
  - PARALYSIS [None]
